FAERS Safety Report 19798191 (Version 2)
Quarter: 2021Q4

REPORT INFORMATION
  Report Type: Spontaneous
  Country: ES (occurrence: ES)
  Receive Date: 20210906
  Receipt Date: 20211003
  Transmission Date: 20220303
  Serious: Yes (Other)
  Sender: FDA-Public Use
  Company Number: ALCN2003ES001592

PATIENT
  Age: 34 Year
  Sex: Female
  Weight: 69 kg

DRUGS (2)
  1. ISOPTO CARPINE [Suspect]
     Active Substance: PILOCARPINE HYDROCHLORIDE
     Indication: Product used for unknown indication
     Dosage: TID OPHT
     Route: 047
     Dates: start: 20030422, end: 20030422
  2. RIFAMYCIN [Concomitant]
     Active Substance: RIFAMYCIN
     Indication: Conjunctivitis bacterial
     Dosage: TID OPHT
     Route: 047

REACTIONS (6)
  - Blindness [Recovered/Resolved]
  - Dizziness [Recovered/Resolved]
  - Normal newborn [Unknown]
  - Maternal exposure during pregnancy [Unknown]
  - Vision blurred [Recovered/Resolved]
  - Headache [Recovered/Resolved]

NARRATIVE: CASE EVENT DATE: 20030422
